FAERS Safety Report 8150608-5 (Version None)
Quarter: 2012Q1

REPORT INFORMATION
  Report Type: 
  Country: None (occurrence: None)
  Receive Date: 20120220
  Receipt Date: 20120213
  Transmission Date: 20120608
  Serious: No
  Sender: FDA-Public Use
  Company Number: PHEH2012US002618

PATIENT
  Sex: Female

DRUGS (9)
  1. DYAZIDE [Concomitant]
  2. MIRAPEX [Concomitant]
  3. CLONAZEPAM [Concomitant]
  4. AMITRIPTYLINE HCL [Concomitant]
  5. IBUPROFEN [Concomitant]
  6. TASIGNA [Suspect]
     Indication: CHRONIC MYELOID LEUKAEMIA
     Dosage: 300 MG, BID
     Route: 048
     Dates: start: 20110801, end: 20120116
  7. EFFEXOR XR [Concomitant]
  8. CALCIUM + MAGNESIUM + ZINC [Concomitant]
  9. COLACE [Concomitant]

REACTIONS (2)
  - ARTHRALGIA [None]
  - GENERAL PHYSICAL CONDITION ABNORMAL [None]
